FAERS Safety Report 17762188 (Version 1)
Quarter: 2020Q2

REPORT INFORMATION
  Report Type: Spontaneous
  Country: FI (occurrence: FI)
  Receive Date: 20200508
  Receipt Date: 20200508
  Transmission Date: 20200714
  Serious: Yes (Death, Other)
  Sender: FDA-Public Use
  Company Number: FI-ABBVIE-20K-055-3312619-00

PATIENT
  Age: 80 Year
  Sex: Male
  Weight: 84 kg

DRUGS (3)
  1. ACICLOVIR [Concomitant]
     Active Substance: ACYCLOVIR
     Indication: ANTIVIRAL PROPHYLAXIS
  2. VENCLYXTO [Suspect]
     Active Substance: VENETOCLAX
     Route: 048
     Dates: start: 20200115, end: 20200221
  3. VENCLYXTO [Suspect]
     Active Substance: VENETOCLAX
     Indication: CHRONIC LYMPHOCYTIC LEUKAEMIA
     Dosage: LOWER DOSE
     Route: 048
     Dates: start: 20200108, end: 20200115

REACTIONS (5)
  - Chronic lymphocytic leukaemia [Fatal]
  - Therapeutic product effect incomplete [Unknown]
  - Headache [Recovered/Resolved]
  - Lymphadenopathy [Fatal]
  - Renal failure [Not Recovered/Not Resolved]

NARRATIVE: CASE EVENT DATE: 2020
